FAERS Safety Report 14107491 (Version 1)
Quarter: 2017Q4

REPORT INFORMATION
  Report Type: Report from Study
  Country: US (occurrence: US)
  Receive Date: 20171019
  Receipt Date: 20171019
  Transmission Date: 20180321
  Serious: Yes (Disabling)
  Sender: FDA-Public Use
  Company Number: US-SA-2016SA083161

PATIENT
  Age: 56 Year
  Sex: Male

DRUGS (7)
  1. LEMTRADA [Suspect]
     Active Substance: ALEMTUZUMAB
     Indication: MULTIPLE SCLEROSIS
     Route: 041
     Dates: start: 20170403, end: 20170405
  2. LEMTRADA [Suspect]
     Active Substance: ALEMTUZUMAB
     Indication: MULTIPLE SCLEROSIS
     Route: 041
     Dates: start: 20160328, end: 20160401
  3. ASA [Concomitant]
     Active Substance: ASPIRIN
  4. CRESTOR [Concomitant]
     Active Substance: ROSUVASTATIN CALCIUM
  5. TYSABRI [Concomitant]
     Active Substance: NATALIZUMAB
  6. DIOVAN [Concomitant]
     Active Substance: VALSARTAN
  7. NEXIUM [Concomitant]
     Active Substance: ESOMEPRAZOLE MAGNESIUM

REACTIONS (6)
  - Blood glucose increased [Recovering/Resolving]
  - Asthenia [Not Recovered/Not Resolved]
  - Condition aggravated [Recovering/Resolving]
  - Fall [Unknown]
  - Wheelchair user [Not Recovered/Not Resolved]
  - Fatigue [Not Recovered/Not Resolved]

NARRATIVE: CASE EVENT DATE: 2016
